FAERS Safety Report 7015941-9 (Version None)
Quarter: 2010Q3

REPORT INFORMATION
  Report Type: 
  Country: None (occurrence: None)
  Receive Date: 20100927
  Receipt Date: 20091218
  Transmission Date: 20110219
  Serious: No
  Sender: FDA-Public Use
  Company Number: US-ASTRAZENECA-2009SE25323

PATIENT
  Sex: Female
  Weight: 53.5 kg

DRUGS (2)
  1. ARIMIDEX [Suspect]
     Route: 048
  2. CRESTOR [Concomitant]

REACTIONS (4)
  - COELIAC DISEASE [None]
  - HYPERSENSITIVITY [None]
  - RASH [None]
  - URTICARIA [None]
